FAERS Safety Report 20160230 (Version 1)
Quarter: 2021Q4

REPORT INFORMATION
  Report Type: Spontaneous
  Country: US (occurrence: None)
  Receive Date: 20211208
  Receipt Date: 20211208
  Transmission Date: 20220304
  Serious: Yes (Other)
  Sender: FDA-Public Use
  Company Number: US-Hikma Pharmaceuticals USA Inc.-US-H14001-21-05243

PATIENT
  Sex: Female
  Weight: 70.76 kg

DRUGS (6)
  1. AMOXICILLIN [Suspect]
     Active Substance: AMOXICILLIN
     Indication: Antibiotic therapy
     Route: 048
     Dates: start: 20211119
  2. FLUTICASONE PROPIONATE [Suspect]
     Active Substance: FLUTICASONE PROPIONATE
     Indication: Asthma
     Dosage: EACH NOSTRIL
     Route: 065
  3. PFIZER-BIONTECH COVID-19 VACCINE [Suspect]
     Active Substance: TOZINAMERAN
     Indication: Immunisation
     Dosage: FIRST DOSE
     Route: 065
     Dates: start: 20210122
  4. PFIZER-BIONTECH COVID-19 VACCINE [Suspect]
     Active Substance: TOZINAMERAN
     Dosage: SECOND DOSE
     Route: 065
     Dates: start: 20210212
  5. PFIZER-BIONTECH COVID-19 VACCINE [Suspect]
     Active Substance: TOZINAMERAN
     Dosage: BOOSTER DOSE
     Route: 065
     Dates: start: 20211007
  6. MOMETASONE FUROATE [Suspect]
     Active Substance: MOMETASONE FUROATE
     Indication: Asthma
     Dosage: IN EACH NOSTRIL
     Route: 065

REACTIONS (11)
  - Feeling abnormal [Unknown]
  - Body height decreased [Unknown]
  - Discomfort [Unknown]
  - Oropharyngeal discomfort [Unknown]
  - Condition aggravated [Unknown]
  - Cardiac disorder [Unknown]
  - Myocardial infarction [Unknown]
  - Mouth swelling [Unknown]
  - Oral disorder [Unknown]
  - Drug ineffective [Unknown]
  - Blood urea abnormal [Unknown]
